FAERS Safety Report 12757812 (Version 1)
Quarter: 2016Q3

REPORT INFORMATION
  Report Type: Report from Study
  Country: US (occurrence: US)
  Receive Date: 20160919
  Receipt Date: 20160919
  Transmission Date: 20161109
  Serious: Yes (Other)
  Sender: FDA-Public Use
  Company Number: US-ROCHE-1829831

PATIENT
  Age: 74 Year
  Sex: Female
  Weight: 102.7 kg

DRUGS (6)
  1. BEVACIZUMAB [Suspect]
     Active Substance: BEVACIZUMAB
     Dosage: SAME DOSE ON 24/OCT/2013
     Route: 042
     Dates: start: 20130930
  2. VELIPARIB [Suspect]
     Active Substance: VELIPARIB
     Route: 048
     Dates: start: 20130830
  3. BEVACIZUMAB [Suspect]
     Active Substance: BEVACIZUMAB
     Indication: OVARIAN EPITHELIAL CANCER
     Route: 042
     Dates: start: 20130802
  4. BEVACIZUMAB [Suspect]
     Active Substance: BEVACIZUMAB
     Route: 042
     Dates: start: 20130830
  5. VELIPARIB [Suspect]
     Active Substance: VELIPARIB
     Indication: OVARIAN EPITHELIAL CANCER
     Dosage: SAME DOSE ON 30/SEP/2013
     Route: 048
     Dates: start: 20130802
  6. VELIPARIB [Suspect]
     Active Substance: VELIPARIB
     Route: 048
     Dates: start: 20131024

REACTIONS (3)
  - Platelet count decreased [Unknown]
  - Hypertension [Unknown]
  - Acute kidney injury [Unknown]
